FAERS Safety Report 21818679 (Version 2)
Quarter: 2023Q1

REPORT INFORMATION
  Report Type: Spontaneous
  Country: IT (occurrence: IT)
  Receive Date: 20230104
  Receipt Date: 20230119
  Transmission Date: 20230418
  Serious: Yes (Hospitalization, Other)
  Sender: FDA-Public Use
  Company Number: IT-VERTEX PHARMACEUTICALS-2022-019596

PATIENT
  Age: 27 Year
  Sex: Male

DRUGS (11)
  1. ELEXACAFTOR\IVACAFTOR\TEZACAFTOR [Suspect]
     Active Substance: ELEXACAFTOR\IVACAFTOR\TEZACAFTOR
     Indication: Cystic fibrosis
     Dosage: 2 TABS (100 MG ELEXACAFTOR/ 50 MG TEZACAFTOR/ 75 MG IVACAFTOR)
     Route: 048
     Dates: start: 20220805
  2. KALYDECO [Suspect]
     Active Substance: IVACAFTOR
     Indication: Cystic fibrosis
     Dosage: 1 TAB, QD
     Route: 048
     Dates: start: 20220805
  3. PANCRELIPASE [Concomitant]
     Active Substance: PANCRELIPASE
     Dosage: 25000 UNIT, 10-12 TABS DURING MEALS
  4. URSODIOL [Concomitant]
     Active Substance: URSODIOL
     Dosage: 1 CAP, THREE TIMES
  5. SALT [Concomitant]
     Active Substance: SODIUM CHLORIDE
     Dosage: 2 TABS
  6. IRON [Concomitant]
     Active Substance: IRON
     Dosage: 1 TAB
  7. VITAMIN D [Concomitant]
     Active Substance: VITAMIN D NOS
     Dosage: 100, 000; 1 VIAL EVERY MONTH
  8. FORMOTEROL [Concomitant]
     Active Substance: FORMOTEROL
     Dosage: 6/100 MCG, 2, INHALE TWICE A DAY
  9. BECLOMETHASONE [Concomitant]
     Active Substance: BECLOMETHASONE
     Dosage: 6/100 MCG
  10. HYPERTONIC [Concomitant]
     Dosage: 1 VIAL
  11. INSULIN NOS [Concomitant]
     Active Substance: INSULIN NOS
     Dosage: H8 2U+H12 2U+H20 4U

REACTIONS (3)
  - Pneumothorax spontaneous [Recovered/Resolved]
  - Acute respiratory failure [Recovered/Resolved]
  - Off label use [Unknown]

NARRATIVE: CASE EVENT DATE: 20220805
